FAERS Safety Report 4283075-2 (Version None)
Quarter: 2004Q1

REPORT INFORMATION
  Report Type: 
  Country: None (occurrence: None)
  Receive Date: 20040129
  Receipt Date: 20040119
  Transmission Date: 20041129
  Serious: Yes (Hospitalization)
  Sender: FDA-Public Use
  Company Number: 2003-11-1606

PATIENT
  Age: 68 Year
  Sex: Male
  Weight: 83.0083 kg

DRUGS (10)
  1. ALBUTEROL SULFATE (WARRICK) SOLUTION FOR INHALATION ^LIKE PROVENTIL^ [Suspect]
     Indication: CHRONIC OBSTRUCTIVE AIRWAYS DISEASE
     Dosage: 5 X DAY INHALATION
     Route: 055
     Dates: end: 20031030
  2. ATROVENT [Suspect]
     Indication: CHRONIC OBSTRUCTIVE AIRWAYS DISEASE
     Dosage: INHALATION
     Route: 055
  3. ALLOPURINOL [Concomitant]
  4. THEOPHYLLINE [Concomitant]
  5. COLCHICINE [Concomitant]
  6. PROVENTIL [Concomitant]
  7. BUMEX [Concomitant]
  8. CARDIZEM [Concomitant]
  9. RANITIDINE [Concomitant]
  10. DICLOFENAC [Concomitant]

REACTIONS (27)
  - ACUTE RESPIRATORY FAILURE [None]
  - BLOOD THYROID STIMULATING HORMONE DECREASED [None]
  - BRONCHITIS BACTERIAL [None]
  - CHEST PAIN [None]
  - CORONARY ARTERY DISEASE [None]
  - COUGH [None]
  - DIZZINESS [None]
  - DRUG INEFFECTIVE [None]
  - DYSPNOEA [None]
  - DYSPNOEA EXERTIONAL [None]
  - DYSPNOEA PAROXYSMAL NOCTURNAL [None]
  - EAR PAIN [None]
  - GLUCOSE URINE PRESENT [None]
  - HYPERADRENALISM [None]
  - HYPERTHYROIDISM [None]
  - NEPHROLITHIASIS [None]
  - ORTHOPNOEA [None]
  - PALPITATIONS [None]
  - PHARMACEUTICAL PRODUCT COMPLAINT [None]
  - PROTHROMBIN TIME SHORTENED [None]
  - RESPIRATORY DISTRESS [None]
  - SINUSITIS [None]
  - THYROXINE INCREASED [None]
  - URINE ABNORMALITY [None]
  - VENTRICULAR TACHYCARDIA [None]
  - WHEEZING [None]
  - WHITE BLOOD CELLS URINE POSITIVE [None]
